FAERS Safety Report 19266225 (Version 1)
Quarter: 2021Q2

REPORT INFORMATION
  Report Type: Spontaneous
  Country: ZA (occurrence: ZA)
  Receive Date: 20210517
  Receipt Date: 20210517
  Transmission Date: 20210717
  Serious: Yes (Other)
  Sender: FDA-Public Use
  Company Number: ZA-GLAXOSMITHKLINE-ZA2021071060

PATIENT
  Sex: Female

DRUGS (1)
  1. LAMICTIN [Suspect]
     Active Substance: LAMOTRIGINE
     Indication: PRODUCT USED FOR UNKNOWN INDICATION
     Dosage: UNK

REACTIONS (4)
  - Abortion spontaneous [Unknown]
  - Product prescribing issue [Unknown]
  - Product use issue [Unknown]
  - Exposure during pregnancy [Unknown]
